FAERS Safety Report 19248949 (Version 2)
Quarter: 2021Q3

REPORT INFORMATION
  Report Type: Report from Study
  Country: CA (occurrence: CA)
  Receive Date: 20210512
  Receipt Date: 20210923
  Transmission Date: 20211014
  Serious: Yes (Other)
  Sender: FDA-Public Use
  Company Number: NVSC2021CA099078

PATIENT
  Sex: Male

DRUGS (5)
  1. ROSUVASTATIN. [Concomitant]
     Active Substance: ROSUVASTATIN
     Indication: BLOOD CHOLESTEROL
     Dosage: 10 MG, QD
     Route: 048
     Dates: start: 20201017
  2. AZITHROMYCIN ANHYDROUS. [Concomitant]
     Active Substance: AZITHROMYCIN ANHYDROUS
     Indication: ANTIBIOTIC THERAPY
     Dosage: 500 MG, QD (2 X 250MG)
     Route: 048
     Dates: start: 20210211, end: 202102
  3. XOLAIR [Suspect]
     Active Substance: OMALIZUMAB
     Indication: ASTHMA
     Dosage: 150 MG, Q4W
     Route: 058
     Dates: start: 20210916
  4. DYMISTA [Concomitant]
     Active Substance: AZELASTINE HYDROCHLORIDE\FLUTICASONE PROPIONATE
     Indication: HYPERSENSITIVITY
     Dosage: 1 UNK, BID
     Route: 045
     Dates: start: 20210131
  5. REACTINE [Concomitant]
     Indication: HYPERSENSITIVITY
     Dosage: 1 UNK, QD
     Route: 048
     Dates: start: 20201017

REACTIONS (9)
  - Dyspnoea exertional [Unknown]
  - Conjunctivitis [Unknown]
  - Rib fracture [Unknown]
  - Asthma [Unknown]
  - Bronchiectasis [Unknown]
  - Cough [Unknown]
  - Blood pressure increased [Unknown]
  - Dry mouth [Unknown]
  - Bronchitis [Unknown]
